FAERS Safety Report 6242032-7 (Version None)
Quarter: 2009Q2

REPORT INFORMATION
  Report Type: 
  Country: None (occurrence: None)
  Receive Date: 20090623
  Receipt Date: 20090610
  Transmission Date: 20091009
  Serious: Yes (Life-Threatening, Hospitalization, Disabling)
  Sender: FDA-Public Use
  Company Number: PHEH2009US03700

PATIENT
  Sex: Female
  Weight: 75.283 kg

DRUGS (10)
  1. RECLAST [Suspect]
     Indication: OSTEOPOROSIS
     Dosage: 5 ML, P/YR.
     Route: 042
     Dates: start: 20090306
  2. LISINOPRIL [Concomitant]
     Dosage: 10 MG, QD
  3. LIPITOR [Concomitant]
     Dosage: 10 MG, QD
  4. EVISTA [Concomitant]
     Dosage: 60 MG, QD
  5. PRILOSEC [Concomitant]
     Dosage: 20 MG, QD
  6. K-DUR [Concomitant]
     Dosage: 20 MEQ, QD
  7. NORVASC [Concomitant]
     Dosage: 2.5 MG, QD
  8. CITRACAL [Concomitant]
     Dosage: 2 TABLETS DAILY
  9. VITAMIN D [Concomitant]
  10. LYRICA [Concomitant]
     Dosage: UNK

REACTIONS (13)
  - BACK PAIN [None]
  - BLOOD POTASSIUM INCREASED [None]
  - BLOOD SODIUM DECREASED [None]
  - HEADACHE [None]
  - INSOMNIA [None]
  - INTERVERTEBRAL DISC PROTRUSION [None]
  - MOBILITY DECREASED [None]
  - MUSCLE SPASMS [None]
  - MUSCULOSKELETAL STIFFNESS [None]
  - MYALGIA [None]
  - NAUSEA [None]
  - NECK PAIN [None]
  - OSTEOARTHRITIS [None]
